FAERS Safety Report 8065018-9 (Version None)
Quarter: 2012Q1

REPORT INFORMATION
  Report Type: 
  Country: None (occurrence: None)
  Receive Date: 20120124
  Receipt Date: 20120117
  Transmission Date: 20120608
  Serious: Yes (Other)
  Sender: FDA-Public Use
  Company Number: US-AMGEN-USASP2011059894

PATIENT
  Age: 50 Year
  Sex: Female

DRUGS (2)
  1. ENBREL [Suspect]
     Indication: RHEUMATOID ARTHRITIS
     Dosage: 50 MG, QWK
     Dates: start: 20110115
  2. METHOTREXATE [Concomitant]
     Dosage: 1 MG, QWK
     Dates: start: 19930101

REACTIONS (9)
  - CHOLELITHIASIS [None]
  - OROPHARYNGEAL PAIN [None]
  - HEPATIC CYST [None]
  - BILE DUCT OBSTRUCTION [None]
  - GINGIVAL BLEEDING [None]
  - HEPATIC ENZYME INCREASED [None]
  - GALLBLADDER NON-FUNCTIONING [None]
  - LYMPHADENOPATHY [None]
  - RHINORRHOEA [None]
